FAERS Safety Report 4502203-4 (Version None)
Quarter: 2004Q4

REPORT INFORMATION
  Report Type: 
  Country: None (occurrence: None)
  Receive Date: 20041109
  Receipt Date: 20041027
  Transmission Date: 20050328
  Serious: Yes (Hospitalization, Disabling)
  Sender: FDA-Public Use
  Company Number: JP_041105018

PATIENT
  Age: 89 Year
  Sex: Female

DRUGS (5)
  1. EVISTA [Suspect]
     Indication: OSTEOPOROSIS
     Dosage: 60 MG DAY
     Dates: start: 20040710, end: 20041009
  2. PREDNISOLONE [Concomitant]
  3. CONIEL (BENIDIPINE HYDROCHLORIDE) [Concomitant]
  4. DIOVAN [Concomitant]
  5. MAGNESIUM OXIDE [Concomitant]

REACTIONS (3)
  - CEREBRAL INFARCTION [None]
  - DISEASE RECURRENCE [None]
  - THROMBOTIC STROKE [None]
